FAERS Safety Report 8425439-9 (Version None)
Quarter: 2012Q2

REPORT INFORMATION
  Report Type: 
  Country: None (occurrence: None)
  Receive Date: 20120611
  Receipt Date: 20120601
  Transmission Date: 20120825
  Serious: Yes (Other)
  Sender: FDA-Public Use
  Company Number: US-US-EMD SERONO, INC.-7027716

PATIENT
  Sex: Female
  Weight: 64 kg

DRUGS (4)
  1. YAZ [Concomitant]
     Indication: CONTRACEPTION
     Dates: start: 20101109
  2. REBIF [Suspect]
     Indication: MULTIPLE SCLEROSIS
     Route: 058
     Dates: start: 20090709
  3. MAXALT [Concomitant]
     Indication: MIGRAINE
  4. NEURONTIN [Concomitant]
     Dates: start: 20101109

REACTIONS (7)
  - MIGRAINE [None]
  - INJECTION SITE HAEMATOMA [None]
  - INJECTION SITE EROSION [None]
  - INJECTION SITE PAIN [None]
  - INJECTION SITE ERYTHEMA [None]
  - OPTIC NEURITIS [None]
  - MULTIPLE SCLEROSIS RELAPSE [None]
